FAERS Safety Report 6660362-1 (Version None)
Quarter: 2010Q1

REPORT INFORMATION
  Report Type: 
  Country: None (occurrence: None)
  Receive Date: 20100330
  Receipt Date: 20100330
  Transmission Date: 20100710
  Serious: Yes (Life-Threatening)
  Sender: FDA-Public Use
  Company Number: None

PATIENT
  Sex: Female
  Weight: 79.3795 kg

DRUGS (1)
  1. DOXYCYCLINE HYCLATE [Suspect]
     Indication: BRONCHITIS
     Dosage: 100MG 2X DAILY X 10 DAYS ORAL
     Route: 048
     Dates: start: 20100313, end: 20100315

REACTIONS (8)
  - DIARRHOEA [None]
  - LUNG DISORDER [None]
  - MYALGIA [None]
  - OROPHARYNGEAL PAIN [None]
  - PAIN [None]
  - PAROSMIA [None]
  - RENAL PAIN [None]
  - VOMITING [None]
